FAERS Safety Report 18060496 (Version 1)
Quarter: 2020Q3

REPORT INFORMATION
  Report Type: Spontaneous
  Country: US (occurrence: US)
  Receive Date: 20200723
  Receipt Date: 20200723
  Transmission Date: 20201103
  Serious: No
  Sender: FDA-Public Use
  Company Number: US-ABBVIE-20K-163-3410201-00

PATIENT
  Sex: Female

DRUGS (2)
  1. ORILISSA [Suspect]
     Active Substance: ELAGOLIX SODIUM
     Indication: MENORRHAGIA
     Route: 048
     Dates: start: 20200207
  2. ORILISSA [Suspect]
     Active Substance: ELAGOLIX SODIUM
     Indication: ADENOMYOSIS

REACTIONS (2)
  - Off label use [Unknown]
  - Menorrhagia [Recovering/Resolving]

NARRATIVE: CASE EVENT DATE: 2020
